FAERS Safety Report 12180340 (Version 1)
Quarter: 2016Q1

REPORT INFORMATION
  Report Type: Spontaneous
  Country: US (occurrence: None)
  Receive Date: 20160314
  Receipt Date: 20160314
  Transmission Date: 20160526
  Serious: No
  Sender: FDA-Public Use
  Company Number: None

PATIENT
  Age: 83 Year
  Sex: Male
  Weight: 68.95 kg

DRUGS (6)
  1. SALMON OIL [Concomitant]
     Active Substance: FISH OIL
  2. DHEA [Concomitant]
     Active Substance: PRASTERONE
  3. BOTOX [Suspect]
     Active Substance: ONABOTULINUMTOXINA
     Indication: HYPERTONIC BLADDER
     Dates: start: 2012
  4. PANTOPROZALE [Concomitant]
  5. MULTI VITAMINS [Concomitant]
  6. SUP PUBIC CATHERTER [Concomitant]

REACTIONS (2)
  - Anosmia [None]
  - Ageusia [None]
